FAERS Safety Report 13883033 (Version 2)
Quarter: 2017Q3

REPORT INFORMATION
  Report Type: Report from Study
  Country: PK (occurrence: PK)
  Receive Date: 20170818
  Receipt Date: 20170827
  Transmission Date: 20171127
  Serious: Yes (Death)
  Sender: FDA-Public Use
  Company Number: PHHY2017PK122321

PATIENT
  Age: 37 Year
  Sex: Female
  Weight: 120 kg

DRUGS (1)
  1. TASIGNA [Suspect]
     Active Substance: NILOTINIB
     Indication: CHRONIC MYELOID LEUKAEMIA
     Dosage: 800 MG, BID
     Route: 048
     Dates: start: 20170119

REACTIONS (1)
  - Death [Fatal]

NARRATIVE: CASE EVENT DATE: 20170601
